FAERS Safety Report 23384451 (Version 4)
Quarter: 2024Q1

REPORT INFORMATION
  Report Type: Spontaneous
  Country: US (occurrence: US)
  Receive Date: 20240109
  Receipt Date: 20240207
  Transmission Date: 20240409
  Serious: No
  Sender: FDA-Public Use
  Company Number: US-PFIZER INC-202400003737

PATIENT
  Age: 72 Year
  Sex: Female
  Weight: 62.6 kg

DRUGS (4)
  1. PAXLOVID [Suspect]
     Active Substance: NIRMATRELVIR\RITONAVIR
     Indication: COVID-19 treatment
     Dosage: [NIRMATRELVIR 300 MG]/[RITONAVIR 100 MG]; 2X/DAY
     Dates: start: 20231222, end: 20231227
  2. VITAMINS [Concomitant]
     Active Substance: VITAMINS
     Dosage: UNK, DAILY
  3. PROLIA [Concomitant]
     Active Substance: DENOSUMAB
     Indication: Osteogenesis imperfecta
     Dosage: ONCE EVERY SIX MONTHS GETS AN INJECTION STARTED THAT ABOUT 5 YEARS AGO
  4. ACETAMINOPHEN [Concomitant]
     Active Substance: ACETAMINOPHEN
     Dosage: 1 OR 2 PER DAY DURING COVID

REACTIONS (3)
  - COVID-19 [Recovered/Resolved]
  - Disease recurrence [Recovered/Resolved]
  - Dysgeusia [Recovered/Resolved]

NARRATIVE: CASE EVENT DATE: 20231222
